FAERS Safety Report 18452923 (Version 1)
Quarter: 2020Q4

REPORT INFORMATION
  Report Type: Spontaneous
  Country: US (occurrence: US)
  Receive Date: 20201102
  Receipt Date: 20201102
  Transmission Date: 20210114
  Serious: Yes (Hospitalization)
  Sender: FDA-Public Use
  Company Number: None

PATIENT
  Age: 76 Year
  Sex: Female

DRUGS (2)
  1. ZARXIO [Suspect]
     Active Substance: FILGRASTIM-SNDZ
     Indication: UTERINE CANCER
     Dosage: FREQUENCY: INJECT ONE SYRINGE INTO THE SKIN DAILY FOR 3 DAYS STARTING ON DAY 12 EVERY 21 DAYS
     Route: 058
     Dates: start: 20201002
  2. ZARXIO [Suspect]
     Active Substance: FILGRASTIM-SNDZ
     Indication: METASTASES TO ABDOMINAL CAVITY
     Dosage: FREQUENCY: INJECT ONE SYRINGE INTO THE SKIN DAILY FOR 3 DAYS STARTING ON DAY 12 EVERY 21 DAYS
     Route: 058
     Dates: start: 20201002

REACTIONS (1)
  - Full blood count decreased [None]

NARRATIVE: CASE EVENT DATE: 20201014
